FAERS Safety Report 4702790-7 (Version None)
Quarter: 2005Q2

REPORT INFORMATION
  Report Type: 
  Country: None (occurrence: None)
  Receive Date: 20050628
  Receipt Date: 20050628
  Transmission Date: 20051028
  Serious: Yes (Hospitalization)
  Sender: FDA-Public Use
  Company Number: None

PATIENT
  Sex: Male
  Weight: 4.1958 kg

DRUGS (2)
  1. CELEXA [Suspect]
     Indication: DISEASE RECURRENCE
     Dosage: 30 MG PO  QD  (ENTIRE PREGNANCY)
     Route: 048
  2. CELEXA [Suspect]
     Indication: MAJOR DEPRESSION
     Dosage: 30 MG PO  QD  (ENTIRE PREGNANCY)
     Route: 048

REACTIONS (5)
  - CAESAREAN SECTION [None]
  - DRUG EXPOSURE DURING PREGNANCY [None]
  - FEEDING PROBLEM IN NEWBORN [None]
  - NEONATAL HYPOXIA [None]
  - NEONATAL TACHYPNOEA [None]
